FAERS Safety Report 4907252-X (Version None)
Quarter: 2006Q1

REPORT INFORMATION
  Report Type: 
  Country: None (occurrence: None)
  Receive Date: 20060207
  Receipt Date: 20060125
  Transmission Date: 20060701
  Serious: Yes (Hospitalization)
  Sender: FDA-Public Use
  Company Number: US-2005-027216

PATIENT
  Age: 51 Year
  Sex: Male
  Weight: 108 kg

DRUGS (14)
  1. FLUDARA [Suspect]
     Indication: CHRONIC LYMPHOCYTIC LEUKAEMIA
     Dates: start: 20051101
  2. RITUXIMAB (RITUXIMAB) [Suspect]
     Indication: CHRONIC LYMPHOCYTIC LEUKAEMIA
     Dosage: 375 MG/M2, 1 DOSE; 500 MG/M2, 1 DOSE
     Dates: start: 20051212, end: 20051212
  3. RITUXIMAB (RITUXIMAB) [Suspect]
     Indication: CHRONIC LYMPHOCYTIC LEUKAEMIA
     Dosage: 375 MG/M2, 1 DOSE; 500 MG/M2, 1 DOSE
     Dates: start: 20051219, end: 20051219
  4. RITUXIMAB (RITUXIMAB) [Suspect]
     Indication: CHRONIC LYMPHOCYTIC LEUKAEMIA
     Dosage: 375 MG/M2, 1 DOSE; 500 MG/M2, 1 DOSE
     Dates: start: 20051101
  5. CYCLOPHOSPHAMIDE [Suspect]
     Indication: CHRONIC LYMPHOCYTIC LEUKAEMIA
     Dates: start: 20051101
  6. VALTREX [Concomitant]
  7. ALLEGRA-D              /01367401/ (FEXOFENADINE HYDROCHLORIDE, PSEUDOE [Concomitant]
  8. KETOCONAZOLE [Concomitant]
  9. SEPTRA DS [Concomitant]
  10. ATENOLOL [Concomitant]
  11. NASONEX [Concomitant]
  12. FERROUS SULFATE TAB [Concomitant]
  13. MOTRIN [Concomitant]
  14. DESYREL [Concomitant]

REACTIONS (15)
  - ANAEMIA HAEMOLYTIC AUTOIMMUNE [None]
  - B-CELL SMALL LYMPHOCYTIC LYMPHOMA [None]
  - BLOOD LACTATE DEHYDROGENASE INCREASED [None]
  - CHRONIC LYMPHOCYTIC LEUKAEMIA [None]
  - ISCHAEMIA [None]
  - LABORATORY TEST INTERFERENCE [None]
  - LYMPHADENOPATHY [None]
  - MALIGNANT NEOPLASM PROGRESSION [None]
  - MYOCARDIAL INFARCTION [None]
  - PAIN IN EXTREMITY [None]
  - PLATELET COUNT INCREASED [None]
  - RETICULOCYTE PERCENTAGE INCREASED [None]
  - TRANSFUSION WITH INCOMPATIBLE BLOOD [None]
  - UNEVALUABLE EVENT [None]
  - WHITE BLOOD CELL COUNT INCREASED [None]
